FAERS Safety Report 25771936 (Version 2)
Quarter: 2025Q4

REPORT INFORMATION
  Report Type: Spontaneous
  Country: US (occurrence: US)
  Receive Date: 20250908
  Receipt Date: 20251009
  Transmission Date: 20260118
  Serious: No
  Sender: ABBVIE
  Company Number: US-ABBVIE-6447116

PATIENT
  Sex: Female

DRUGS (1)
  1. RINVOQ [Suspect]
     Active Substance: UPADACITINIB
     Indication: Product used for unknown indication
     Dosage: FORM STRENGTH 30 MILLIGRAM
     Route: 048

REACTIONS (4)
  - Asthma [Unknown]
  - Dysphonia [Recovered/Resolved]
  - Hypertension [Unknown]
  - Laryngitis [Recovered/Resolved]
